FAERS Safety Report 21971937 (Version 1)
Quarter: 2023Q1

REPORT INFORMATION
  Report Type: Spontaneous
  Country: US (occurrence: US)
  Receive Date: 20230209
  Receipt Date: 20230209
  Transmission Date: 20230418
  Serious: No
  Sender: FDA-Public Use
  Company Number: US-TARO PHARMACEUTICALS USA INC.-2022TAR01472

PATIENT

DRUGS (1)
  1. KETOCONAZOLE [Suspect]
     Active Substance: KETOCONAZOLE
     Indication: Seborrhoeic dermatitis
     Dosage: UNK, BID
     Route: 061
     Dates: start: 20221206

REACTIONS (4)
  - Condition aggravated [Unknown]
  - Disease progression [Unknown]
  - Product administration error [Unknown]
  - Product quality issue [Unknown]
